FAERS Safety Report 7459492-6 (Version None)
Quarter: 2011Q2

REPORT INFORMATION
  Report Type: 
  Country: None (occurrence: None)
  Receive Date: 20110426
  Receipt Date: 20110412
  Transmission Date: 20111010
  Serious: Yes (Hospitalization)
  Sender: FDA-Public Use
  Company Number: DE-1185857

PATIENT
  Age: 39 Year
  Sex: Male
  Weight: 92 kg

DRUGS (1)
  1. ISOPTO MAX OPHTHALMIC SUSPENSION (ISOPTO-MAX) [Suspect]
     Indication: STRABISMUS CORRECTION
     Dosage: (1 GTT QID OD OPHTHALMIC)
     Route: 047
     Dates: start: 20110315, end: 20110317

REACTIONS (5)
  - ASTHENIA [None]
  - FATIGUE [None]
  - CIRCULATORY COLLAPSE [None]
  - HYPOTONIA [None]
  - HOT FLUSH [None]
